FAERS Safety Report 5464194-1 (Version None)
Quarter: 2007Q3

REPORT INFORMATION
  Report Type: 
  Country: None (occurrence: None)
  Receive Date: 20070921
  Receipt Date: 20070918
  Transmission Date: 20080115
  Serious: Yes (Death, Hospitalization)
  Sender: FDA-Public Use
  Company Number: US-AMGEN-US240190

PATIENT
  Sex: Male

DRUGS (3)
  1. PROCRIT [Suspect]
     Indication: RENAL FAILURE CHRONIC
     Dates: start: 20050101
  2. DIABETIC MEDICATION NOS [Concomitant]
  3. ANTIHYPERTENSIVE MEDICATION NOS [Concomitant]

REACTIONS (1)
  - PANCREATITIS [None]
